FAERS Safety Report 17812538 (Version 1)
Quarter: 2020Q2

REPORT INFORMATION
  Report Type: Spontaneous
  Country: US (occurrence: US)
  Receive Date: 20200521
  Receipt Date: 20200521
  Transmission Date: 20200714
  Serious: Yes (Hospitalization)
  Sender: FDA-Public Use
  Company Number: US-BECTON DICKINSON-2020BDN00139

PATIENT
  Age: 67 Year
  Sex: Female

DRUGS (2)
  1. CLOPIDOGREL [Concomitant]
     Active Substance: CLOPIDOGREL BISULFATE
     Route: 065
  2. CHLORHEXIDINE [Suspect]
     Active Substance: CHLORHEXIDINE
     Indication: ANTIBIOTIC PROPHYLAXIS
     Dosage: (ALLOWED TO DRY FOR THREE MINUTES)
     Route: 061

REACTIONS (1)
  - Septic arthritis staphylococcal [Recovered/Resolved]
